FAERS Safety Report 16218883 (Version 1)
Quarter: 2019Q2

REPORT INFORMATION
  Report Type: Other
  Country: US (occurrence: US)
  Receive Date: 20190419
  Receipt Date: 20190419
  Transmission Date: 20190711
  Serious: Yes (Life-Threatening, Other)
  Sender: FDA-Public Use
  Company Number: US-ALSI-201900172

PATIENT
  Age: 75 Year
  Sex: Female

DRUGS (1)
  1. OXYGEN. [Suspect]
     Active Substance: OXYGEN
     Indication: OXYGEN THERAPY

REACTIONS (3)
  - Acute respiratory distress syndrome [Unknown]
  - Barotrauma [Unknown]
  - Pneumomediastinum [Unknown]
